FAERS Safety Report 6182611-9 (Version None)
Quarter: 2009Q2

REPORT INFORMATION
  Report Type: 
  Country: None (occurrence: None)
  Receive Date: 20090507
  Receipt Date: 20090430
  Transmission Date: 20091009
  Serious: Yes (Hospitalization)
  Sender: FDA-Public Use
  Company Number: PHEH2009US04379

PATIENT
  Age: 40 Year
  Sex: Male
  Weight: 104.31 kg

DRUGS (3)
  1. TEKTURNA [Suspect]
     Indication: HYPERTENSION
     Dosage: 150 MG DAILY
     Dates: start: 20090201, end: 20090419
  2. LISINOPRIL [Suspect]
     Dosage: 40 MG, UNK
  3. DYAZIDE [Suspect]
     Dosage: 37.5 MG, UNK

REACTIONS (2)
  - BLOOD SODIUM DECREASED [None]
  - MENTAL STATUS CHANGES [None]
